FAERS Safety Report 13988580 (Version 1)
Quarter: 2017Q3

REPORT INFORMATION
  Report Type: Spontaneous
  Country: CN (occurrence: CN)
  Receive Date: 20170919
  Receipt Date: 20170919
  Transmission Date: 20171128
  Serious: Yes (Life-Threatening, Hospitalization, Disabling, Other)
  Sender: FDA-Public Use
  Company Number: CN-GILEAD-2017-0293240

PATIENT
  Age: 55 Year
  Sex: Male

DRUGS (1)
  1. HEPSERA [Suspect]
     Active Substance: ADEFOVIR DIPIVOXIL
     Indication: HEPATITIS B
     Dosage: 1 DF, QD
     Route: 048
     Dates: start: 20090901, end: 20170622

REACTIONS (17)
  - Intervertebral disc degeneration [Unknown]
  - Bone disorder [Unknown]
  - Multiple fractures [Unknown]
  - Arthralgia [Unknown]
  - Discomfort [Unknown]
  - Bone marrow oedema [Unknown]
  - Arthropathy [Unknown]
  - Pathological fracture [Recovering/Resolving]
  - Metastases to bone [Unknown]
  - Cough [Unknown]
  - Meniscus injury [Unknown]
  - Joint effusion [Unknown]
  - Rib fracture [Unknown]
  - Bone density decreased [Unknown]
  - Bone pain [Recovering/Resolving]
  - Spinal disorder [Unknown]
  - Intervertebral disc protrusion [Unknown]

NARRATIVE: CASE EVENT DATE: 2017
